FAERS Safety Report 5857454-3 (Version None)
Quarter: 2008Q3

REPORT INFORMATION
  Report Type: 
  Country: None (occurrence: None)
  Receive Date: 20080825
  Receipt Date: 20080825
  Transmission Date: 20090109
  Serious: No
  Sender: FDA-Public Use
  Company Number: None

PATIENT
  Sex: Female

DRUGS (1)
  1. RISPERDAL [Suspect]
     Indication: PSYCHOTIC DISORDER
     Dosage: 1MG AT BEDTIME PO
     Route: 048
     Dates: start: 20080422, end: 20080505

REACTIONS (1)
  - BREAST DISCHARGE [None]
